FAERS Safety Report 9265204 (Version 2)
Quarter: 2013Q2

REPORT INFORMATION
  Report Type: Report from Study
  Country: US (occurrence: US)
  Receive Date: 20130501
  Receipt Date: 20130507
  Transmission Date: 20140414
  Serious: Yes (Death, Hospitalization, Other)
  Sender: FDA-Public Use
  Company Number: US-PFIZER INC-2013134581

PATIENT
  Age: 65 Year
  Sex: Female

DRUGS (6)
  1. CARBOPLATIN [Suspect]
     Indication: OVARIAN CANCER
  2. PACLITAXEL [Suspect]
     Indication: OVARIAN CANCER
  3. CISPLATIN [Suspect]
     Indication: OVARIAN CANCER
     Route: 033
  4. GEMCITABINE HYDROCHLORIDE [Suspect]
     Indication: OVARIAN CANCER
  5. DOXORUBICIN HYDROCHLORIDE [Suspect]
     Indication: OVARIAN CANCER
     Dosage: UNK
     Dates: start: 200809, end: 200911
  6. BEVACIZUMAB [Suspect]
     Indication: OVARIAN CANCER
     Dosage: UNK
     Dates: start: 200809, end: 200911

REACTIONS (2)
  - Renal failure chronic [Recovering/Resolving]
  - Thrombotic microangiopathy [Unknown]
